FAERS Safety Report 20345081 (Version 1)
Quarter: 2022Q1

REPORT INFORMATION
  Report Type: Spontaneous
  Country: PL (occurrence: PL)
  Receive Date: 20220118
  Receipt Date: 20220118
  Transmission Date: 20220424
  Serious: Yes (Other)
  Sender: FDA-Public Use
  Company Number: PL-ABBVIE-22K-129-4238336-00

PATIENT
  Age: 67 Year
  Sex: Male

DRUGS (8)
  1. VENETOCLAX [Suspect]
     Active Substance: VENETOCLAX
     Indication: Acute lymphocytic leukaemia
     Route: 048
     Dates: start: 20210803, end: 20210803
  2. VENETOCLAX [Suspect]
     Active Substance: VENETOCLAX
     Route: 048
     Dates: start: 20210804, end: 20210804
  3. VENETOCLAX [Suspect]
     Active Substance: VENETOCLAX
     Route: 048
     Dates: start: 20210805, end: 20210805
  4. VENETOCLAX [Suspect]
     Active Substance: VENETOCLAX
     Route: 048
     Dates: start: 20210806, end: 20210903
  5. VENETOCLAX [Suspect]
     Active Substance: VENETOCLAX
     Route: 048
     Dates: start: 20210906
  6. AZACITIDINE [Concomitant]
     Active Substance: AZACITIDINE
     Indication: Acute lymphocytic leukaemia
     Dates: start: 20210803, end: 2021
  7. AZACITIDINE [Concomitant]
     Active Substance: AZACITIDINE
     Dates: start: 20210906, end: 2021
  8. AZACITIDINE [Concomitant]
     Active Substance: AZACITIDINE
     Dates: start: 202112

REACTIONS (2)
  - Pancytopenia [Unknown]
  - Thrombocytopenia [Unknown]

NARRATIVE: CASE EVENT DATE: 20210906
